FAERS Safety Report 9602530 (Version 4)
Quarter: 2013Q4

REPORT INFORMATION
  Report Type: Spontaneous
  Country: US (occurrence: US)
  Receive Date: 20131007
  Receipt Date: 20131118
  Transmission Date: 20140711
  Serious: No
  Sender: FDA-Public Use
  Company Number: US-PFIZER INC-2013280558

PATIENT
  Sex: Male

DRUGS (4)
  1. SUTENT [Suspect]
     Indication: NEOPLASM MALIGNANT
     Dosage: 50 MG, CYCLIC (DAILY)
     Dates: start: 20130926
  2. MARIJUANA [Concomitant]
     Dosage: UNK
  3. OXYCONTIN [Concomitant]
     Dosage: UNK
  4. OXYCODONE [Concomitant]
     Dosage: UNK

REACTIONS (9)
  - Fatigue [Not Recovered/Not Resolved]
  - Feeling abnormal [Unknown]
  - Spinal pain [Recovering/Resolving]
  - Glossodynia [Unknown]
  - Temperature intolerance [Unknown]
  - Bone pain [Not Recovered/Not Resolved]
  - Somnolence [Unknown]
  - Disease progression [Unknown]
  - Neoplasm malignant [Unknown]
